FAERS Safety Report 7806815-1 (Version None)
Quarter: 2011Q4

REPORT INFORMATION
  Report Type: 
  Country: None (occurrence: None)
  Receive Date: 20111011
  Receipt Date: 20111007
  Transmission Date: 20120403
  Serious: Yes (Life-Threatening, Hospitalization, Other)
  Sender: FDA-Public Use
  Company Number: FR-PFIZER INC-2011239816

PATIENT
  Age: 37 Year
  Sex: Female

DRUGS (2)
  1. IBUPROFEN (ADVIL) [Suspect]
     Indication: PRODUCTIVE COUGH
  2. IBUPROFEN (ADVIL) [Suspect]
     Indication: DYSPNOEA
     Dosage: 2 DF, EVERY 2 HOURS
     Route: 048
     Dates: start: 20101022, end: 20101024

REACTIONS (10)
  - ACUTE RESPIRATORY DISTRESS SYNDROME [None]
  - AGRANULOCYTOSIS [None]
  - PNEUMONIA PNEUMOCOCCAL [None]
  - LEUKOPENIA [None]
  - THROMBOCYTOPENIA [None]
  - MONOCYTOPENIA [None]
  - OVERDOSE [None]
  - SEPSIS [None]
  - LYMPHOPENIA [None]
  - ANAEMIA [None]
